FAERS Safety Report 13715340 (Version 1)
Quarter: 2017Q3

REPORT INFORMATION
  Report Type: Spontaneous
  Country: AT (occurrence: AT)
  Receive Date: 20170704
  Receipt Date: 20170704
  Transmission Date: 20171127
  Serious: Yes (Death)
  Sender: FDA-Public Use
  Company Number: AT-TEVA-781214ISR

PATIENT
  Age: 74 Year
  Sex: Female
  Weight: 65 kg

DRUGS (3)
  1. DOMINAL 80MG [Interacting]
     Active Substance: PROTHIPENDYL HYDROCHLORIDE
     Indication: RESTLESSNESS
     Dosage: 1 DOSAGE FORMS DAILY;
     Dates: start: 20161024, end: 20161026
  2. ESCITALOPRAM [Suspect]
     Active Substance: ESCITALOPRAM OXALATE
     Dosage: 1 DOSAGE FORMS DAILY;
     Dates: end: 20161024
  3. ESOMEPRAZOL [Interacting]
     Active Substance: ESOMEPRAZOLE
     Dosage: 1 DOSAGE FORMS DAILY;

REACTIONS (1)
  - Asphyxia [Fatal]

NARRATIVE: CASE EVENT DATE: 20161026
